FAERS Safety Report 11771906 (Version 1)
Quarter: 2015Q4

REPORT INFORMATION
  Report Type: Spontaneous
  Country: US (occurrence: None)
  Receive Date: 20151123
  Receipt Date: 20151123
  Transmission Date: 20160304
  Serious: Yes (Disabling)
  Sender: FDA-Public Use
  Company Number: None

PATIENT
  Age: 79 Year
  Sex: Female
  Weight: 48.08 kg

DRUGS (15)
  1. HRT [Concomitant]
     Active Substance: UNSPECIFIED INGREDIENT
  2. CALCIUM-CHOLECALCIFEROL [Concomitant]
     Active Substance: CALCIUM\CHOLECALCIFEROL
  3. ERGOCALCIFEROL, VITAMIN D2 [Concomitant]
  4. MULTIVITAMIN [Concomitant]
     Active Substance: VITAMINS
  5. OMEGA-3S/DHA/EPA/FISH OIL (OMEGA 3) [Concomitant]
  6. ACETAMINOPHEN, TYLENOL [Concomitant]
  7. ESTERIFIED ESTROGEN (MENEST) [Concomitant]
  8. SYNTHROID [Concomitant]
     Active Substance: LEVOTHYROXINE SODIUM
  9. MEDROXYPROGESTERONE ACETATE (PROVERA) [Concomitant]
  10. D3 [Concomitant]
     Active Substance: 25-HYDROXYCHOLECALCIFEROL, 5-TRANS-
  11. ESTRADIOL (VAGIFEM) [Concomitant]
  12. KERYDIN [Suspect]
     Active Substance: TAVABOROLE
     Indication: ONYCHOMYCOSIS
     Dosage: ONCE A DAY ONCE A DAY PAINTED IN TOENAILS
     Dates: start: 20151021, end: 20151025
  13. SYNTHROID [Concomitant]
     Active Substance: LEVOTHYROXINE SODIUM
  14. ASPIRIN. [Concomitant]
     Active Substance: ASPIRIN
  15. B-INFANTIS/B ANI/B LON/B BIFID (PROBIOTIC) [Concomitant]

REACTIONS (5)
  - Burning sensation [None]
  - Peripheral swelling [None]
  - Rash erythematous [None]
  - Malaise [None]
  - Joint swelling [None]

NARRATIVE: CASE EVENT DATE: 20151021
